FAERS Safety Report 18431631 (Version 1)
Quarter: 2020Q4

REPORT INFORMATION
  Report Type: Other
  Country: MY (occurrence: MY)
  Receive Date: 20201027
  Receipt Date: 20201027
  Transmission Date: 20210114
  Serious: Yes (Other)
  Sender: FDA-Public Use
  Company Number: MY-MILLICENT HOLDINGS LTD.-MILL20201012

PATIENT
  Sex: Male

DRUGS (6)
  1. TESTOSTERONE. [Suspect]
     Active Substance: TESTOSTERONE
     Indication: HIV INFECTION
     Dosage: UNKNOWN
     Route: 042
  2. _HYDROCORTISONE [Suspect]
     Active Substance: HYDROCORTISONE
     Indication: HIV INFECTION
     Dosage: UNKNOWN
     Route: 042
  3. DEHYDROEPIANDROSTERONE [Suspect]
     Active Substance: PRASTERONE
     Indication: HIV INFECTION
     Dosage: UNKNOWN
     Route: 042
  4. MULTIVITAMINS [Concomitant]
     Active Substance: VITAMINS
     Indication: PRODUCT USED FOR UNKNOWN INDICATION
     Dosage: HIGH-DOSE
     Route: 048
  5. MINERALS [Concomitant]
     Active Substance: MINERALS
     Indication: PRODUCT USED FOR UNKNOWN INDICATION
     Dosage: HIGH-DOSE
     Route: 048
  6. _VITAMIN C [Suspect]
     Active Substance: ASCORBIC ACID
     Indication: HIV INFECTION
     Dosage: UNKNOWN
     Route: 042

REACTIONS (10)
  - Retinal disorder [Recovered/Resolved]
  - Cytomegalovirus chorioretinitis [Recovered/Resolved]
  - Retinitis [Recovered/Resolved]
  - Vision blurred [Recovered/Resolved]
  - Retinal haemorrhage [Recovered/Resolved]
  - Retinal vasculitis [Recovered/Resolved]
  - Retinal exudates [Recovered/Resolved]
  - Drug abuse [Unknown]
  - Vitreal cells [Recovered/Resolved]
  - Vitritis [Recovered/Resolved]
